FAERS Safety Report 9514049 (Version 1)
Quarter: 2013Q3

REPORT INFORMATION
  Report Type: Spontaneous
  Country: DE (occurrence: DE)
  Receive Date: 20130910
  Receipt Date: 20130910
  Transmission Date: 20140515
  Serious: Yes (Hospitalization)
  Sender: FDA-Public Use
  Company Number: PHHY2013DE096667

PATIENT
  Age: 54 Year
  Sex: Female

DRUGS (1)
  1. OXALIPLATIN [Suspect]

REACTIONS (10)
  - Multi-organ failure [Recovered/Resolved]
  - Back pain [Recovered/Resolved]
  - Chills [Recovered/Resolved]
  - Pyrexia [Recovered/Resolved]
  - Autoimmune haemolytic anaemia [Recovered/Resolved]
  - Haemolysis [Recovered/Resolved]
  - Disseminated intravascular coagulation [Recovered/Resolved]
  - Renal failure acute [Recovered/Resolved]
  - Inflammatory marker increased [Recovered/Resolved]
  - Anuria [Recovered/Resolved]
